FAERS Safety Report 4990914-6 (Version None)
Quarter: 2006Q2

REPORT INFORMATION
  Report Type: 
  Country: None (occurrence: None)
  Receive Date: 20060503
  Receipt Date: 20050928
  Transmission Date: 20061013
  Serious: Yes (Hospitalization)
  Sender: FDA-Public Use
  Company Number: US-MERCK-0509USA04451

PATIENT
  Age: 77 Year
  Sex: Female
  Weight: 75 kg

DRUGS (5)
  1. VIOXX [Suspect]
     Indication: ARTHRALGIA
     Route: 048
     Dates: start: 20020216, end: 20030523
  2. VIOXX [Suspect]
     Indication: ARTHRITIS
     Route: 048
     Dates: start: 20020216, end: 20030523
  3. ASPIRIN [Concomitant]
     Route: 065
     Dates: end: 20020101
  4. LISINOPRIL [Concomitant]
     Route: 065
     Dates: start: 20030312
  5. LISINOPRIL [Concomitant]
     Route: 048

REACTIONS (47)
  - ANXIETY [None]
  - ASTHENIA [None]
  - BALANCE DISORDER [None]
  - BRADYCARDIA [None]
  - CEREBRAL ATROPHY [None]
  - CEREBRAL INFARCTION [None]
  - CEREBRAL ISCHAEMIA [None]
  - CEREBROVASCULAR ACCIDENT [None]
  - COGNITIVE DISORDER [None]
  - CONFUSIONAL STATE [None]
  - COORDINATION ABNORMAL [None]
  - CORONARY ARTERY OCCLUSION [None]
  - CORONARY ARTERY STENOSIS [None]
  - COUGH [None]
  - DEMENTIA [None]
  - DIZZINESS [None]
  - DYSPHAGIA [None]
  - DYSPNOEA [None]
  - DYSPNOEA PAROXYSMAL NOCTURNAL [None]
  - EAR DISCOMFORT [None]
  - ELECTROCARDIOGRAM QT PROLONGED [None]
  - ELECTROCARDIOGRAM T WAVE ABNORMAL [None]
  - EMOTIONAL DISTRESS [None]
  - EYELID PTOSIS [None]
  - FATIGUE [None]
  - GAIT DISTURBANCE [None]
  - HAEMATOMA [None]
  - HYPERTENSION [None]
  - HYPOAESTHESIA [None]
  - LUNG INFILTRATION [None]
  - MENTAL DISORDER [None]
  - MUCOPOLYSACCHARIDOSIS II [None]
  - MYOCARDIAL INFARCTION [None]
  - MYOCARDIAL ISCHAEMIA [None]
  - NAUSEA [None]
  - NECK PAIN [None]
  - ORTHOPNOEA [None]
  - OSTEOARTHRITIS [None]
  - PAIN IN EXTREMITY [None]
  - PEPTIC ULCER [None]
  - RENAL FAILURE [None]
  - RENAL FAILURE ACUTE [None]
  - SINUS BRADYCARDIA [None]
  - TRANSIENT ISCHAEMIC ATTACK [None]
  - UPPER RESPIRATORY TRACT INFECTION [None]
  - VENTRICULAR HYPERTROPHY [None]
  - VENTRICULAR HYPOKINESIA [None]
